FAERS Safety Report 16398588 (Version 1)
Quarter: 2019Q2

REPORT INFORMATION
  Report Type: Spontaneous
  Country: US (occurrence: US)
  Receive Date: 20190606
  Receipt Date: 20190606
  Transmission Date: 20190711
  Serious: Yes (Hospitalization)
  Sender: FDA-Public Use
  Company Number: US-PFIZER INC-2019237555

PATIENT
  Age: 83 Year
  Sex: Female
  Weight: 63 kg

DRUGS (1)
  1. XELJANZ XR [Suspect]
     Active Substance: TOFACITINIB CITRATE
     Indication: RHEUMATOID ARTHRITIS
     Dosage: 11 MG, 1X/DAY
     Route: 048
     Dates: start: 201904, end: 20190527

REACTIONS (5)
  - Respiratory tract congestion [Not Recovered/Not Resolved]
  - Nausea [Recovered/Resolved]
  - Oropharyngeal pain [Recovered/Resolved]
  - Wheezing [Not Recovered/Not Resolved]
  - Chronic obstructive pulmonary disease [Unknown]
